FAERS Safety Report 6064470-8 (Version None)
Quarter: 2009Q1

REPORT INFORMATION
  Report Type: 
  Country: None (occurrence: None)
  Receive Date: 20090204
  Receipt Date: 20090128
  Transmission Date: 20090719
  Serious: Yes (Disabling)
  Sender: FDA-Public Use
  Company Number: JP-ASTRAZENECA-2009AP00342

PATIENT
  Age: 65 Year
  Sex: Male
  Weight: 67 kg

DRUGS (9)
  1. CRESTOR [Suspect]
     Indication: HYPERLIPIDAEMIA
     Route: 048
     Dates: start: 20080110, end: 20080305
  2. ASPIRIN [Concomitant]
     Indication: ANGINA PECTORIS
     Route: 048
  3. LASIX [Concomitant]
     Indication: RENAL FAILURE
     Route: 048
  4. MAINTATE [Concomitant]
     Indication: ANGINA PECTORIS
     Route: 048
  5. EUGLUCON [Concomitant]
     Indication: DIABETES MELLITUS
     Route: 048
  6. NU-LOTAN [Concomitant]
     Indication: HYPERTENSION
     Route: 048
  7. PANALDINE [Concomitant]
     Indication: ANGINA PECTORIS
     Route: 048
  8. ADALAT CC [Concomitant]
     Indication: HYPERTENSION
     Route: 048
  9. GLUCOBAY [Concomitant]
     Indication: DIABETES MELLITUS
     Route: 048

REACTIONS (1)
  - BLOOD CREATININE INCREASED [None]
